FAERS Safety Report 4516719-8 (Version None)
Quarter: 2004Q4

REPORT INFORMATION
  Report Type: 
  Country: None (occurrence: None)
  Receive Date: 20041029
  Receipt Date: 20040901
  Transmission Date: 20050328
  Serious: No
  Sender: FDA-Public Use
  Company Number: 2004-119965-NL

PATIENT
  Age: 46 Year
  Sex: Female
  Weight: 79.4 kg

DRUGS (9)
  1. NUVARING [Suspect]
     Indication: CONTRACEPTION
     Dosage: DF DAILY VAGINAL
     Route: 067
     Dates: start: 20040818
  2. MULTI-VITAMINS [Concomitant]
  3. CALCIUM [Concomitant]
  4. VITAMIN B NOS [Concomitant]
  5. VITAMIN E [Concomitant]
  6. BIOFLAVINOID CAPS [Concomitant]
  7. ESTER-C [Concomitant]
  8. NETTLE TINCTURE [Concomitant]
  9. DANDELION TINCTURE [Concomitant]

REACTIONS (4)
  - ABDOMINAL PAIN [None]
  - FLATULENCE [None]
  - METRORRHAGIA [None]
  - VAGINAL CONTRACEPTIVE DEVICE EXPELLED [None]
